FAERS Safety Report 24674719 (Version 1)
Quarter: 2024Q4

REPORT INFORMATION
  Report Type: Report from Study
  Country: GB (occurrence: GB)
  Receive Date: 20241128
  Receipt Date: 20241128
  Transmission Date: 20250115
  Serious: Yes (Other)
  Sender: SANDOZ
  Company Number: GB-SANDOZ-SDZ2023GB050787

PATIENT
  Sex: Male

DRUGS (2)
  1. HYRIMOZ [Suspect]
     Active Substance: ADALIMUMAB-ADAZ
     Indication: Rheumatoid arthritis
     Dosage: 40 MG, Q2W, 40 MG/0.8 ML SOLUTION FOR INJECTION IN PRE-FILLED PEN
     Route: 058
     Dates: start: 20231003
  2. HYRIMOZ [Suspect]
     Active Substance: ADALIMUMAB-ADAZ
     Dosage: 40 MG, Q2W, 40MG/0.4ML SOLUTION FOR INJECTION PRE-FILLED PENS
     Route: 058

REACTIONS (2)
  - Hernia [Unknown]
  - Drug ineffective [Unknown]
